FAERS Safety Report 9604536 (Version 2)
Quarter: 2013Q4

REPORT INFORMATION
  Report Type: Spontaneous
  Country: ES (occurrence: ES)
  Receive Date: 20131008
  Receipt Date: 20131008
  Transmission Date: 20140711
  Serious: Yes (Hospitalization)
  Sender: FDA-Public Use
  Company Number: ES-SANOFI-AVENTIS-2013SA012904

PATIENT
  Age: 76 Year
  Sex: Female

DRUGS (11)
  1. DOCETAXEL [Suspect]
     Indication: HER-2 POSITIVE BREAST CANCER
     Dosage: FREQUENCY- 1 IN 21 DAY
     Route: 042
     Dates: start: 20130122
  2. DOCETAXEL [Suspect]
     Indication: HER-2 POSITIVE BREAST CANCER
     Route: 042
     Dates: start: 20130214
  3. PERTUZUMAB [Suspect]
     Indication: HER-2 POSITIVE BREAST CANCER
     Route: 042
     Dates: start: 20130122
  4. PERTUZUMAB [Suspect]
     Indication: HER-2 POSITIVE BREAST CANCER
     Route: 042
  5. TRASTUZUMAB [Suspect]
     Indication: HER-2 POSITIVE BREAST CANCER
     Dosage: LOADING DOSE- 712 MG, CYCLE 1 DAY 1
     Route: 065
     Dates: start: 20130122, end: 20130122
  6. TRASTUZUMAB [Suspect]
     Indication: HER-2 POSITIVE BREAST CANCER
     Route: 042
  7. AMIKACIN [Concomitant]
     Dates: start: 20130131, end: 20130207
  8. CEFTAZIDIME [Concomitant]
     Dates: start: 20130131, end: 20130207
  9. SIMVASTATIN [Concomitant]
     Dates: start: 200801
  10. TIORFAN [Concomitant]
     Dates: start: 20130126, end: 20130129
  11. AMLODIPINE BESILATE [Concomitant]
     Dates: start: 200801

REACTIONS (1)
  - Colitis [Recovered/Resolved]
